FAERS Safety Report 7035580-3 (Version None)
Quarter: 2010Q4

REPORT INFORMATION
  Report Type: 
  Country: None (occurrence: None)
  Receive Date: 20101008
  Receipt Date: 20100928
  Transmission Date: 20110411
  Serious: Yes (Other)
  Sender: FDA-Public Use
  Company Number: US-PFIZER INC-2010123904

PATIENT
  Sex: Male
  Weight: 74.83 kg

DRUGS (3)
  1. VIAGRA [Suspect]
     Indication: ERECTILE DYSFUNCTION
     Dosage: 75 MG, AS NEEDED
     Route: 048
  2. VALSARTAN [Interacting]
     Indication: HYPERTENSION
     Dosage: UNK
     Dates: start: 20100601
  3. SIMVASTATIN [Concomitant]
     Indication: BLOOD CHOLESTEROL INCREASED
     Dosage: 20 MG, UNK

REACTIONS (3)
  - DRUG INEFFECTIVE [None]
  - DRUG INTERACTION [None]
  - HYPERTENSION [None]
